FAERS Safety Report 9187678 (Version 1)
Quarter: 2013Q1

REPORT INFORMATION
  Report Type: Spontaneous
  Country: US (occurrence: US)
  Receive Date: 20130325
  Receipt Date: 20130325
  Transmission Date: 20140127
  Serious: Yes (Disabling, Other)
  Sender: FDA-Public Use
  Company Number: US-PFIZER INC-2013094188

PATIENT
  Age: 61 Year
  Sex: Female

DRUGS (1)
  1. DILANTIN [Suspect]
     Indication: CONVULSION
     Dosage: 200 MG (TWO 100MG CAPSULES), 2X/DAY
     Route: 048

REACTIONS (9)
  - Polyarthritis [Unknown]
  - Local swelling [Unknown]
  - Musculoskeletal disorder [Unknown]
  - Activities of daily living impaired [Unknown]
  - Drug ineffective [Unknown]
  - Spinal disorder [Unknown]
  - Intervertebral disc protrusion [Unknown]
  - Abdominal hernia [Unknown]
  - Muscular weakness [Unknown]
